FAERS Safety Report 8375018-7 (Version None)
Quarter: 2012Q2

REPORT INFORMATION
  Report Type: 
  Country: None (occurrence: None)
  Receive Date: 20120521
  Receipt Date: 20120515
  Transmission Date: 20120825
  Serious: Yes (Death, Other)
  Sender: FDA-Public Use
  Company Number: US-BAYER-200943308NA

PATIENT
  Age: 71 Year
  Sex: Male
  Weight: 70 kg

DRUGS (21)
  1. COUMADIN [Concomitant]
     Dosage: 5 MG, QD
     Route: 048
  2. AMIODARONE HCL [Concomitant]
     Dosage: UNK
     Dates: start: 20050720, end: 20050720
  3. PROTAMINE SULFATE [Concomitant]
     Dosage: UNK
     Dates: start: 20050720, end: 20050720
  4. POTASSIUM CHLORIDE [Concomitant]
     Dosage: 40 MEQ, QD
     Route: 048
  5. TRASYLOL [Suspect]
     Indication: CORONARY ARTERY BYPASS
     Dosage: 1 ML TEST DOSE, 200 ML PUMP PRIME FOLLOWED BY 50 CC/HR
     Route: 042
     Dates: start: 20050720, end: 20050720
  6. ZOCOR [Concomitant]
     Dosage: 80 MG, QD
     Route: 048
  7. PLASMA [Concomitant]
     Dosage: 4 U, UNK
     Route: 042
     Dates: start: 20050720
  8. TOPROL-XL [Concomitant]
     Route: 048
  9. RED BLOOD CELLS [Concomitant]
     Dosage: 3 U, UNK
     Route: 042
     Dates: start: 20000220
  10. PLATELETS [Concomitant]
     Dosage: 1 U, UNK
     Route: 042
     Dates: start: 20050720
  11. NIPRIDE [Concomitant]
     Dosage: UNK
     Dates: start: 20050720
  12. HEPARIN [Concomitant]
     Dosage: UNK
     Dates: start: 20050720, end: 20050720
  13. LISINOPRIL [Concomitant]
     Dosage: 5 MG, QD
     Route: 048
  14. ASPIRIN [Concomitant]
     Dosage: 81 MG, QD
     Route: 048
  15. LOPRESSOR SR [Concomitant]
     Dosage: 100 MG, QD
     Route: 048
  16. PLAVIX [Concomitant]
     Dosage: 75 MG, QD
     Route: 048
  17. PLENDIL [Concomitant]
     Dosage: 10 MG, QD
     Route: 048
  18. CRYOPRECIPITATES [Concomitant]
     Dosage: 10 U, UNK
     Route: 042
     Dates: start: 20050720
  19. VECURONIUM BROMIDE [Concomitant]
     Dosage: UNK
     Dates: start: 20050720, end: 20050720
  20. CEFUROXIME [Concomitant]
     Dosage: 1 G, UNK
     Dates: start: 20050720, end: 20050720
  21. NESIRITIDE [Concomitant]
     Dosage: UNK
     Dates: start: 20050720

REACTIONS (7)
  - RENAL FAILURE [None]
  - PAIN [None]
  - UNEVALUABLE EVENT [None]
  - DEATH [None]
  - RENAL INJURY [None]
  - INJURY [None]
  - RENAL FAILURE ACUTE [None]
